FAERS Safety Report 4382173-2 (Version None)
Quarter: 2004Q2

REPORT INFORMATION
  Report Type: 
  Country: None (occurrence: None)
  Receive Date: 20040615
  Receipt Date: 20040602
  Transmission Date: 20050107
  Serious: Yes (Hospitalization)
  Sender: FDA-Public Use
  Company Number: 2004036997

PATIENT
  Sex: Male
  Weight: 95.2554 kg

DRUGS (1)
  1. ZOLOFT [Suspect]
     Indication: DEPRESSION
     Dosage: 100 MG (1 IN 1 D), ORAL
     Route: 048
     Dates: start: 20030101

REACTIONS (3)
  - EMOTIONAL DISORDER [None]
  - MEDICATION ERROR [None]
  - MENTAL DISORDER [None]
